FAERS Safety Report 7270780-9 (Version None)
Quarter: 2011Q1

REPORT INFORMATION
  Report Type: 
  Country: None (occurrence: None)
  Receive Date: 20110202
  Receipt Date: 20110128
  Transmission Date: 20110831
  Serious: Yes (Other)
  Sender: FDA-Public Use
  Company Number: RU-PFIZER INC-2011013828

PATIENT
  Age: 23 Year
  Sex: Male

DRUGS (2)
  1. DOSTINEX [Suspect]
     Indication: PITUITARY TUMOUR BENIGN
     Dosage: 0.5 MG, 2X/WEEK (ON MO AND TH)
     Route: 048
     Dates: start: 20080101, end: 20080101
  2. DOSTINEX [Suspect]
     Dosage: 0.75 MG, 2X/WEEK (ON MO AND TH)
     Route: 048
     Dates: start: 20080101, end: 20110101

REACTIONS (4)
  - BLOOD PROLACTIN INCREASED [None]
  - THOUGHT INSERTION [None]
  - HEADACHE [None]
  - TREATMENT NONCOMPLIANCE [None]
